FAERS Safety Report 6979648-6 (Version None)
Quarter: 2010Q3

REPORT INFORMATION
  Report Type: 
  Country: None (occurrence: None)
  Receive Date: 20100913
  Receipt Date: 20100903
  Transmission Date: 20110219
  Serious: Yes (Other)
  Sender: FDA-Public Use
  Company Number: US-AMGEN-QUU436083

PATIENT
  Sex: Female

DRUGS (3)
  1. NEUPOGEN [Suspect]
     Indication: CHEMOTHERAPY
     Dates: start: 19980101, end: 20100801
  2. CYTOXAN [Concomitant]
  3. TAXOTERE [Concomitant]

REACTIONS (3)
  - BACK PAIN [None]
  - PAIN [None]
  - WHITE BLOOD CELL COUNT DECREASED [None]
